FAERS Safety Report 5596232-X (Version None)
Quarter: 2008Q1

REPORT INFORMATION
  Report Type: 
  Country: None (occurrence: None)
  Receive Date: 20080118
  Receipt Date: 20080108
  Transmission Date: 20080703
  Serious: Yes (Hospitalization)
  Sender: FDA-Public Use
  Company Number: CA-ABBOTT-07P-028-0427678-00

PATIENT
  Sex: Male

DRUGS (5)
  1. KALETRA [Suspect]
     Indication: HIV INFECTION
     Dosage: 200MG/50MG
     Route: 048
     Dates: start: 20071130
  2. KALETRA [Suspect]
     Dates: start: 20071207, end: 20071227
  3. KALETRA [Suspect]
     Dates: start: 20071229
  4. METHADONE HCL [Concomitant]
     Indication: DRUG USE FOR UNKNOWN INDICATION
     Dates: start: 20010101
  5. TRUVADA [Concomitant]
     Indication: HIV INFECTION
     Dates: start: 20071130

REACTIONS (7)
  - DEHYDRATION [None]
  - DIARRHOEA [None]
  - INFECTION [None]
  - NAUSEA [None]
  - PYREXIA [None]
  - SHIGELLA INFECTION [None]
  - VOMITING [None]
